FAERS Safety Report 6936528-X (Version None)
Quarter: 2010Q3

REPORT INFORMATION
  Report Type: 
  Country: None (occurrence: None)
  Receive Date: 20100823
  Receipt Date: 20100803
  Transmission Date: 20110219
  Serious: No
  Sender: FDA-Public Use
  Company Number: US-PFIZER INC-2010099005

PATIENT
  Sex: Male
  Weight: 132.88 kg

DRUGS (13)
  1. GABAPENTIN [Suspect]
     Indication: DIABETIC NEUROPATHY
     Dosage: 300 MG, IN THE EVENING
     Dates: start: 20090101
  2. GABAPENTIN [Suspect]
     Dosage: 800 MG, IN THE MORNING
     Dates: start: 20090101
  3. ATENOLOL [Concomitant]
     Dosage: 50 MG, UNK
  4. INSULIN DETEMIR [Concomitant]
     Dosage: 60 IU, DAILY
  5. ACETYLSALICYLIC ACID [Concomitant]
     Dosage: 82 MG, UNK
  6. LISINOPRIL [Concomitant]
     Dosage: 20 MG, UNK
  7. SIMVASTATIN [Concomitant]
     Dosage: 80 MG, UNK
  8. INDAPAMIDE [Concomitant]
     Dosage: 2.5 UNK
  9. ISOSORBIDE MONONITRATE [Concomitant]
     Dosage: 60 UNK
  10. METFORMIN [Concomitant]
     Dosage: 1000 MG, 2X/DAY
  11. TAMSULOSIN HCL [Concomitant]
     Dosage: 0.45 MG, UNK
  12. LASIX [Concomitant]
     Dosage: UNK AS NEEDED
  13. FISH OIL [Concomitant]
     Dosage: UNK

REACTIONS (3)
  - DIARRHOEA [None]
  - INCREASED APPETITE [None]
  - MEDICATION RESIDUE [None]
